FAERS Safety Report 7587611-X (Version None)
Quarter: 2011Q3

REPORT INFORMATION
  Report Type: 
  Country: None (occurrence: None)
  Receive Date: 20110704
  Receipt Date: 20110620
  Transmission Date: 20111222
  Serious: Yes (Other)
  Sender: FDA-Public Use
  Company Number: PHHY2011BR55307

PATIENT
  Age: 70 Year
  Sex: Male

DRUGS (2)
  1. DIOVAN [Suspect]
     Indication: HYPERTENSION
     Dosage: HALF TABLET OF 160 MG, DAILY
     Route: 048
     Dates: start: 20030501
  2. MODURETIC 5-50 [Suspect]
     Indication: HYPERTENSION
     Dosage: 25 MG AMILORIDE AND 2.5 MG HYDROCHLOROTHIAZIDE, DAILY
     Route: 048
     Dates: start: 20040601

REACTIONS (3)
  - BRONCHITIS [None]
  - MUSCLE SPASMS [None]
  - WRONG TECHNIQUE IN DRUG USAGE PROCESS [None]
